FAERS Safety Report 9641640 (Version 1)
Quarter: 2013Q4

REPORT INFORMATION
  Report Type: Report from Study
  Country: US (occurrence: US)
  Receive Date: 20131023
  Receipt Date: 20131023
  Transmission Date: 20140711
  Serious: Yes (Hospitalization)
  Sender: FDA-Public Use
  Company Number: US-VIIV HEALTHCARE LIMITED-B0933866A

PATIENT
  Age: 55 Year
  Sex: Male
  Weight: 73.6 kg

DRUGS (21)
  1. MARAVIROC [Suspect]
     Indication: HIV INFECTION
     Dosage: 600MG TWICE PER DAY
     Route: 048
     Dates: start: 20110221
  2. LEVOTHYROXINE [Concomitant]
     Dates: start: 20101019
  3. REMERON [Concomitant]
     Dates: start: 20080303
  4. LIDODERM [Concomitant]
     Dates: start: 20110316
  5. POTASSIUM [Concomitant]
     Dates: start: 20110101
  6. DEPO-TESTOSTERONE [Concomitant]
     Dates: start: 20110208
  7. CLONIDINE [Concomitant]
     Dates: start: 20110208
  8. CIALIS [Concomitant]
     Dates: start: 20110208
  9. AMITRIPTYLINE [Concomitant]
     Dates: start: 20110208
  10. ACETAMINOPHEN [Concomitant]
     Dates: start: 20110210
  11. LEXAPRO [Concomitant]
     Dates: start: 20120824
  12. OMEPRAZOLE [Concomitant]
     Dates: start: 20120824
  13. CALCIUM CARBONATE [Concomitant]
     Dates: start: 20110210
  14. VITAMIN D [Concomitant]
     Dates: start: 20110221
  15. FIORICET [Concomitant]
     Dates: start: 20111003
  16. MELOXICAM [Concomitant]
     Dates: start: 20111228
  17. PRAVACHOL [Concomitant]
     Dates: start: 20120329
  18. TESSALON PERLES [Concomitant]
     Dates: start: 20121112
  19. TUSSIONEX [Concomitant]
     Dates: start: 20121112
  20. LASIX [Concomitant]
     Dates: start: 20130201
  21. COMBIVENT INHALER [Concomitant]
     Dates: start: 20130308

REACTIONS (1)
  - Acute myocardial infarction [Recovering/Resolving]
